FAERS Safety Report 21915793 (Version 1)
Quarter: 2023Q1

REPORT INFORMATION
  Report Type: Spontaneous
  Country: US (occurrence: US)
  Receive Date: 20230126
  Receipt Date: 20230126
  Transmission Date: 20230418
  Serious: No
  Sender: FDA-Public Use
  Company Number: US-PFIZER INC-202300034916

PATIENT
  Age: 52 Year
  Sex: Male
  Weight: 91.63 kg

DRUGS (1)
  1. RAMIPRIL [Suspect]
     Active Substance: RAMIPRIL
     Dosage: UNK

REACTIONS (1)
  - Drug ineffective [Unknown]
